FAERS Safety Report 11888396 (Version 1)
Quarter: 2016Q1

REPORT INFORMATION
  Report Type: Spontaneous
  Country: US (occurrence: US)
  Receive Date: 20160105
  Receipt Date: 20160105
  Transmission Date: 20160526
  Serious: No
  Sender: FDA-Public Use
  Company Number: US-009507513-1601USA000530

PATIENT
  Age: 89 Year
  Sex: Male

DRUGS (3)
  1. BELSOMRA [Suspect]
     Active Substance: SUVOREXANT
     Dosage: TOTAL DAILY DOSAGE: 20 MG
     Route: 048
     Dates: start: 20160101, end: 20160101
  2. BELSOMRA [Suspect]
     Active Substance: SUVOREXANT
     Indication: SOMNOLENCE
     Dosage: 10 MG, DAILY
     Route: 048
     Dates: start: 201512, end: 20151231
  3. BELSOMRA [Suspect]
     Active Substance: SUVOREXANT
     Dosage: 10 MG, DAILY
     Route: 048
     Dates: start: 20160102

REACTIONS (2)
  - Dizziness [Unknown]
  - Overdose [Unknown]

NARRATIVE: CASE EVENT DATE: 20160101
